FAERS Safety Report 11948344 (Version 1)
Quarter: 2016Q1

REPORT INFORMATION
  Report Type: Spontaneous
  Country: US (occurrence: US)
  Receive Date: 20160125
  Receipt Date: 20160125
  Transmission Date: 20160526
  Serious: No
  Sender: FDA-Public Use
  Company Number: US-BAUSCH-BL-2015-012675

PATIENT
  Age: 78 Year
  Sex: Female
  Weight: 57.2 kg

DRUGS (2)
  1. VITAMINS [Concomitant]
     Active Substance: VITAMINS
     Indication: PRODUCT USED FOR UNKNOWN INDICATION
  2. TOBRAMYCIN OPHTHALMIC SOLUTION USP 0.3% [Suspect]
     Active Substance: TOBRAMYCIN
     Indication: EYE INFECTION
     Route: 061
     Dates: start: 20150327

REACTIONS (1)
  - Vision blurred [Not Recovered/Not Resolved]

NARRATIVE: CASE EVENT DATE: 20150429
